FAERS Safety Report 12091062 (Version 4)
Quarter: 2016Q2

REPORT INFORMATION
  Report Type: Spontaneous
  Country: US (occurrence: US)
  Receive Date: 20160218
  Receipt Date: 20160413
  Transmission Date: 20160815
  Serious: Yes (Other)
  Sender: FDA-Public Use
  Company Number: US-PFIZER INC-2016097296

PATIENT
  Age: 41 Year
  Sex: Female
  Weight: 104 kg

DRUGS (3)
  1. LYRICA [Suspect]
     Active Substance: PREGABALIN
     Indication: FIBROMYALGIA
     Dosage: 300 MG, 2X/DAY
     Route: 048
     Dates: start: 2009
  2. LYRICA [Suspect]
     Active Substance: PREGABALIN
     Indication: NEUROPATHY PERIPHERAL
  3. LYRICA [Suspect]
     Active Substance: PREGABALIN
     Indication: NEURALGIA

REACTIONS (7)
  - Malaise [Unknown]
  - Pain [Not Recovered/Not Resolved]
  - Breast abscess [Unknown]
  - Condition aggravated [Not Recovered/Not Resolved]
  - Infection [Unknown]
  - Influenza [Unknown]
  - Gait disturbance [Not Recovered/Not Resolved]
